FAERS Safety Report 12423538 (Version 1)
Quarter: 2016Q2

REPORT INFORMATION
  Report Type: Spontaneous
  Country: US (occurrence: None)
  Receive Date: 20160531
  Receipt Date: 20160531
  Transmission Date: 20160815
  Serious: Yes (Disabling)
  Sender: FDA-Public Use
  Company Number: None

PATIENT
  Age: 5 Year
  Sex: Female
  Weight: 14.52 kg

DRUGS (2)
  1. SINGULAIR [Suspect]
     Active Substance: MONTELUKAST SODIUM
     Indication: MULTIPLE ALLERGIES
     Route: 048
     Dates: start: 20160201, end: 20160520
  2. FLINTSTONES CHEWABLE VITAMIN [Concomitant]

REACTIONS (6)
  - Depressed mood [None]
  - Tic [None]
  - Nightmare [None]
  - Feeling guilty [None]
  - Insomnia [None]
  - Drug withdrawal syndrome [None]

NARRATIVE: CASE EVENT DATE: 20160201
